FAERS Safety Report 7938014-7 (Version None)
Quarter: 2011Q4

REPORT INFORMATION
  Report Type: 
  Country: None (occurrence: None)
  Receive Date: 20111123
  Receipt Date: 20111107
  Transmission Date: 20120403
  Serious: Yes (Hospitalization)
  Sender: FDA-Public Use
  Company Number: FI-US-EMD SERONO, INC.-7093690

PATIENT
  Sex: Female

DRUGS (6)
  1. IBUPROFEN [Concomitant]
     Route: 048
  2. PROPRAL (PROPRANOLOL) [Concomitant]
     Indication: DECREASED APPETITE
  3. PROPRAL (PROPRANOLOL) [Concomitant]
     Indication: PANIC ATTACK
  4. REBIF [Suspect]
     Indication: MULTIPLE SCLEROSIS
     Route: 058
     Dates: start: 20090917, end: 20110816
  5. OPAMOX (OXAZEPAM) [Concomitant]
     Indication: ANXIETY
  6. OPAMOX (OXAZEPAM) [Concomitant]
     Indication: PANIC ATTACK

REACTIONS (1)
  - ACUTE PSYCHOSIS [None]
